FAERS Safety Report 9307044 (Version 2)
Quarter: 2013Q4

REPORT INFORMATION
  Report Type: Spontaneous
  Country: US (occurrence: US)
  Receive Date: 20130523
  Receipt Date: 20131112
  Transmission Date: 20140711
  Serious: Yes (Hospitalization)
  Sender: FDA-Public Use
  Company Number: US-B.I. PHARMACEUTICALS,INC./RIDGEFIELD-2013-BI-14269BP

PATIENT
  Age: 71 Year
  Sex: Male
  Weight: 95.25 kg

DRUGS (18)
  1. PRADAXA [Suspect]
     Indication: ANTICOAGULANT THERAPY
     Dosage: 300 MG
     Dates: start: 20110308, end: 20111107
  2. PRADAXA [Suspect]
     Indication: ATRIAL FIBRILLATION
  3. ASMANEX TWISTHALER [Concomitant]
     Dosage: 1 PUF
  4. ATROVENT [Concomitant]
  5. LASIX [Concomitant]
     Dosage: 80 MG
  6. MS CONTIN [Concomitant]
     Dosage: 45 MG
  7. SEROQUEL [Concomitant]
     Dosage: 600 MG
  8. ZOLOFT [Concomitant]
     Dosage: 200 MG
     Route: 048
  9. ALBUTEROL SULFATE [Concomitant]
  10. BUSPIRONE [Concomitant]
     Dosage: 40 MG
  11. DICLOFENAC [Concomitant]
     Dosage: 150 MG
     Route: 048
  12. GABAPENTIN [Concomitant]
     Dosage: 3600 MG
     Route: 048
  13. GEMFIBROZIL [Concomitant]
     Dosage: 3600 MG
  14. GLYBURIDE [Concomitant]
     Dosage: 2.5 MG
     Route: 048
  15. ISOSORBIDE DINITRATE [Concomitant]
     Dosage: 30 MG
     Route: 048
  16. LISINOPRIL [Concomitant]
     Dosage: 5 MG
     Route: 048
  17. OMEPRAZOLE [Concomitant]
     Dosage: 40 MG
     Route: 048
  18. POTASSIUM CHLORIDE [Concomitant]
     Dosage: 10 MEQ
     Route: 048

REACTIONS (2)
  - Gastrointestinal haemorrhage [Unknown]
  - Clostridium difficile colitis [Unknown]
